FAERS Safety Report 8698828 (Version 3)
Quarter: 2012Q4

REPORT INFORMATION
  Report Type: 
  Country: JP (occurrence: JP)
  Receive Date: 20120802
  Receipt Date: 20120928
  Transmission Date: 20130627
  Serious: Yes (Death, Hospitalization, Other)
  Sender: FDA-Public Use
  Company Number: JP-SANOFI-AVENTIS-2012SA053782

PATIENT
  Age: 80 Year
  Sex: Male
  Weight: 55 kg

DRUGS (7)
  1. TAXOTERE [Suspect]
     Indication: PROSTATE CANCER
     Route: 042
     Dates: start: 20110624, end: 20110624
  2. TAXOTERE [Suspect]
     Indication: PROSTATE CANCER
     Route: 042
     Dates: start: 20110729, end: 20110729
  3. DECADRON /CAN/ [Concomitant]
     Indication: PROSTATE CANCER
     Route: 048
     Dates: start: 20110624
  4. THERAPEUTIC RADIOPHARMACEUTICALS [Concomitant]
     Dosage: DOSE: 30 Gy each to lumbar vertebra and dorsal vertebra.
     Dates: start: 20110621, end: 20110721
  5. GASMOTIN [Concomitant]
     Indication: PROPHYLAXIS
     Route: 048
     Dates: start: 20110628
  6. MAGLAX [Concomitant]
     Indication: PROPHYLAXIS
     Route: 048
     Dates: start: 20110708
  7. TRAMAL [Concomitant]
     Indication: PAIN
     Route: 048
     Dates: start: 20110708

REACTIONS (7)
  - Bone marrow failure [Fatal]
  - Pyrexia [Fatal]
  - General physical health deterioration [Fatal]
  - Neutropenia [Fatal]
  - Pneumonia staphylococcal [Fatal]
  - Disseminated intravascular coagulation [Fatal]
  - Bone marrow failure [Unknown]
